FAERS Safety Report 9824662 (Version 3)
Quarter: 2014Q1

REPORT INFORMATION
  Report Type: Spontaneous
  Country: US (occurrence: US)
  Receive Date: 20140117
  Receipt Date: 20140328
  Transmission Date: 20141002
  Serious: No
  Sender: FDA-Public Use
  Company Number: US-B.I. PHARMACEUTICALS,INC./RIDGEFIELD-2014-BI-00739BP

PATIENT
  Age: 53 Year
  Sex: Female
  Weight: 74 kg

DRUGS (8)
  1. SPIRIVA [Suspect]
     Indication: CHRONIC OBSTRUCTIVE PULMONARY DISEASE
     Dosage: 18 MCG
     Route: 055
     Dates: start: 20100513
  2. GLIPIZIDE [Concomitant]
     Indication: DIABETES MELLITUS
     Dosage: 5 MG
     Route: 048
  3. METFORMIN [Concomitant]
     Indication: DIABETES MELLITUS
     Dosage: 2000 MG
     Route: 048
  4. ADVAIR [Concomitant]
     Indication: CHRONIC OBSTRUCTIVE PULMONARY DISEASE
     Dosage: FORMULATION: INHALATION AEROSOL; STRENGTH: 250 MCG / 50 MCG; DAILY DOSE: 500 MCG / 100 MCG
     Route: 055
  5. ASPIRIN [Concomitant]
     Dosage: 325 MG
     Route: 048
  6. DICLOFENAC [Concomitant]
     Indication: BACK PAIN
     Dosage: 150 MG
     Route: 048
  7. LIDODERM PATCH [Concomitant]
     Indication: BACK PAIN
     Dosage: FORMULATION: PATCH
     Route: 065
  8. PRAVASTATIN [Concomitant]
     Indication: BLOOD CHOLESTEROL INCREASED
     Route: 048

REACTIONS (2)
  - Upper respiratory tract infection [Not Recovered/Not Resolved]
  - Product quality issue [Recovered/Resolved]
